FAERS Safety Report 20861854 (Version 2)
Quarter: 2022Q2

REPORT INFORMATION
  Report Type: Spontaneous
  Country: JP (occurrence: JP)
  Receive Date: 20220523
  Receipt Date: 20220624
  Transmission Date: 20220721
  Serious: Yes (Other)
  Sender: FDA-Public Use
  Company Number: JP-GLAXOSMITHKLINE-JP2022JPN080177

PATIENT

DRUGS (22)
  1. BENLYSTA [Suspect]
     Active Substance: BELIMUMAB
     Indication: Systemic lupus erythematosus
     Dosage: 10 MG/KG, ONCE EVERY 2 WEEKS
     Route: 041
     Dates: start: 20181012, end: 20190306
  2. BENLYSTA [Suspect]
     Active Substance: BELIMUMAB
     Indication: Lupus nephritis
     Dosage: 10 MG/KG, ONCE EVERY 4 WEEKS
     Route: 041
     Dates: start: 20190405
  3. PREDONINE [Suspect]
     Active Substance: PREDNISOLONE
     Indication: Systemic lupus erythematosus
     Dosage: 8 MG, 1D
     Route: 048
     Dates: start: 20190307, end: 20190405
  4. PREDONINE [Suspect]
     Active Substance: PREDNISOLONE
     Dosage: 7 MG, 1D
     Route: 048
     Dates: start: 20190406, end: 20190510
  5. PREDONINE [Suspect]
     Active Substance: PREDNISOLONE
     Dosage: 6 MG, 1D
     Route: 048
     Dates: start: 20190511, end: 20190614
  6. PREDONINE [Suspect]
     Active Substance: PREDNISOLONE
     Dosage: 5 MG, 1D
     Route: 048
     Dates: start: 20190615
  7. CELLCEPT [Suspect]
     Active Substance: MYCOPHENOLATE MOFETIL
     Indication: Systemic lupus erythematosus
  8. PROGRAF [Suspect]
     Active Substance: TACROLIMUS
     Indication: Systemic lupus erythematosus
  9. PREDNISOLONE [Concomitant]
     Active Substance: PREDNISOLONE
     Indication: Systemic lupus erythematosus
     Dosage: 17.5 MG, 1D
     Route: 048
     Dates: start: 20181012, end: 20181109
  10. PREDNISOLONE [Concomitant]
     Active Substance: PREDNISOLONE
     Dosage: 15 MG, 1D
     Route: 048
     Dates: start: 20181110, end: 20181206
  11. PREDNISOLONE [Concomitant]
     Active Substance: PREDNISOLONE
     Dosage: 12.5 MG, 1D
     Route: 048
     Dates: start: 20181207, end: 20190110
  12. PREDNISOLONE [Concomitant]
     Active Substance: PREDNISOLONE
     Dosage: 10 MG, 1D
     Route: 048
     Dates: start: 20190111, end: 20190207
  13. PREDNISOLONE [Concomitant]
     Active Substance: PREDNISOLONE
     Dosage: 9 MG, 1D
     Route: 048
     Dates: start: 20190208, end: 20190306
  14. PLAQUENIL [Concomitant]
     Active Substance: HYDROXYCHLOROQUINE SULFATE
     Indication: Systemic lupus erythematosus
  15. NIFEDIPINE [Concomitant]
     Active Substance: NIFEDIPINE
  16. OLMESARTAN (OLMESARTAN MEDOXOMIL) [Concomitant]
  17. NEXIUM [Concomitant]
     Active Substance: ESOMEPRAZOLE MAGNESIUM
     Indication: Gastritis prophylaxis
  18. ONEALFA [Concomitant]
     Active Substance: ALFACALCIDOL
     Indication: Osteoporosis prophylaxis
  19. METHYLCOBALAMIN [Concomitant]
     Active Substance: METHYLCOBALAMIN
  20. AMPHOTERICIN B [Concomitant]
     Active Substance: AMPHOTERICIN B
     Indication: Prophylaxis
  21. BONVIVA INTRAVENOUS INJECTION (SODIUM IBANDRONATE) [Concomitant]
     Indication: Osteoporosis prophylaxis
  22. BENAMBAX INHALATION [Concomitant]
     Indication: Prophylaxis

REACTIONS (5)
  - Prerenal failure [Recovered/Resolved]
  - Retinal vein occlusion [Recovered/Resolved]
  - Gastroenteritis viral [Recovered/Resolved]
  - Bronchitis [Recovered/Resolved]
  - Macular oedema [Recovered/Resolved]

NARRATIVE: CASE EVENT DATE: 20191111
